FAERS Safety Report 14695265 (Version 7)
Quarter: 2018Q3

REPORT INFORMATION
  Report Type: Report from Study
  Country: US (occurrence: US)
  Receive Date: 20180329
  Receipt Date: 20180820
  Transmission Date: 20181010
  Serious: Yes (Hospitalization, Other)
  Sender: FDA-Public Use
  Company Number: US-ACTELION-A-NJ2018-169600

PATIENT
  Age: 82 Year
  Sex: Female
  Weight: 53.61 kg

DRUGS (3)
  1. ADCIRCA [Concomitant]
     Active Substance: TADALAFIL
  2. TYVASO [Concomitant]
     Active Substance: TREPROSTINIL
  3. OPSUMIT [Suspect]
     Active Substance: MACITENTAN
     Indication: PULMONARY ARTERIAL HYPERTENSION
     Dosage: 10 MG, QD
     Route: 048
     Dates: start: 20150608

REACTIONS (11)
  - Headache [Unknown]
  - Cough [Unknown]
  - Anaemia [Unknown]
  - Basal cell carcinoma [Unknown]
  - Mineral supplementation [Unknown]
  - Dizziness [Unknown]
  - Dyspnoea [Unknown]
  - Blood iron decreased [Unknown]
  - Infection [Recovered/Resolved]
  - Upper respiratory tract infection [Unknown]
  - Pneumonia [Unknown]

NARRATIVE: CASE EVENT DATE: 20180313
